FAERS Safety Report 15048164 (Version 1)
Quarter: 2018Q2

REPORT INFORMATION
  Report Type: Spontaneous
  Country: US (occurrence: US)
  Receive Date: 20180622
  Receipt Date: 20180622
  Transmission Date: 20180711
  Serious: No
  Sender: FDA-Public Use
  Company Number: US-ELI_LILLY_AND_COMPANY-US201805011486

PATIENT
  Sex: Female

DRUGS (3)
  1. HUMALOG [Suspect]
     Active Substance: INSULIN LISPRO
     Indication: DIABETES MELLITUS
     Dosage: 06 U, TID (06 U BREAKFAST, LUNCH TIME AND DINNER TIME)
     Route: 058
     Dates: start: 201711
  2. LANTUS [Concomitant]
     Active Substance: INSULIN GLARGINE
     Indication: DIABETES MELLITUS
     Dosage: 10 U, DAILY AT NIGHT
     Route: 065
  3. HUMALOG [Suspect]
     Active Substance: INSULIN LISPRO
     Dosage: 06 U, TID (06 U BREAKFAST, LUNCH TIME AND DINNER TIME)
     Route: 058

REACTIONS (3)
  - Blood glucose increased [Not Recovered/Not Resolved]
  - Blood glucose decreased [Unknown]
  - Incorrect dose administered [Not Recovered/Not Resolved]

NARRATIVE: CASE EVENT DATE: 201805
